FAERS Safety Report 6099034-3 (Version None)
Quarter: 2009Q1

REPORT INFORMATION
  Report Type: 
  Country: None (occurrence: None)
  Receive Date: 20090302
  Receipt Date: 20090205
  Transmission Date: 20090719
  Serious: Yes (Hospitalization)
  Sender: FDA-Public Use
  Company Number: IN-PFIZER INC-2009166847

PATIENT

DRUGS (3)
  1. BLINDED GABAPENTIN [Suspect]
     Indication: PARTIAL SEIZURES
     Dosage: UNK
     Route: 048
     Dates: start: 20081111
  2. BLINDED PREGABALIN [Suspect]
     Indication: PARTIAL SEIZURES
     Dosage: UNK
     Route: 048
     Dates: start: 20081111
  3. TEGRETOL-XR [Concomitant]
     Dosage: UNK
     Route: 048
     Dates: start: 19980101

REACTIONS (1)
  - ENCEPHALITIS [None]
